FAERS Safety Report 5108766-2 (Version None)
Quarter: 2006Q3

REPORT INFORMATION
  Report Type: 
  Country: None (occurrence: None)
  Receive Date: 20060918
  Receipt Date: 20060906
  Transmission Date: 20061208
  Serious: Yes (Hospitalization)
  Sender: FDA-Public Use
  Company Number: 2006107237

PATIENT
  Age: 41 Year
  Sex: Male
  Weight: 108 kg

DRUGS (1)
  1. SUTENT [Suspect]
     Indication: NON-SMALL CELL LUNG CANCER
     Dosage: 50 MG (50 MG, FR:  ONCE DAILY; INT:  DAILY 4WKS OF 4 WK), ORAL
     Route: 048
     Dates: start: 20060612

REACTIONS (4)
  - CONDITION AGGRAVATED [None]
  - METASTASES TO BONE [None]
  - PAIN [None]
  - PNEUMONIA STAPHYLOCOCCAL [None]
